FAERS Safety Report 11714584 (Version 1)
Quarter: 2015Q4

REPORT INFORMATION
  Report Type: Spontaneous
  Country: US (occurrence: None)
  Receive Date: 20151106
  Receipt Date: 20151106
  Transmission Date: 20160304
  Serious: No
  Sender: FDA-Public Use
  Company Number: None

PATIENT

DRUGS (4)
  1. METRONIDAZOLE. [Suspect]
     Active Substance: METRONIDAZOLE
  2. FLUCONAZOLE. [Suspect]
     Active Substance: FLUCONAZOLE
  3. CIPROFLOXACIN. [Suspect]
     Active Substance: CIPROFLOXACIN
  4. LEVOFLOXACIN. [Suspect]
     Active Substance: LEVOFLOXACIN

REACTIONS (1)
  - Circumstance or information capable of leading to medication error [None]
